FAERS Safety Report 6330180-2 (Version None)
Quarter: 2009Q3

REPORT INFORMATION
  Report Type: 
  Country: None (occurrence: None)
  Receive Date: 20090827
  Receipt Date: 20090818
  Transmission Date: 20100115
  Serious: Yes (Other)
  Sender: FDA-Public Use
  Company Number: US-JNJFOC-20090805985

PATIENT
  Sex: Female
  Weight: 78.47 kg

DRUGS (10)
  1. REMICADE [Suspect]
     Indication: CROHN'S DISEASE
     Dosage: GIVEN ON WEEK 0, 2 AND 6
     Route: 042
  2. PREDNISONE TAB [Concomitant]
  3. CRESTOR [Concomitant]
  4. DIOVAN [Concomitant]
  5. RESTORIL [Concomitant]
  6. EFFEXOR XR [Concomitant]
  7. METOPROLOL [Concomitant]
  8. OXYBUTYNIN [Concomitant]
  9. PREVACID [Concomitant]
  10. LORAZEPAM [Concomitant]

REACTIONS (1)
  - LUPUS-LIKE SYNDROME [None]
